FAERS Safety Report 6353328-2 (Version None)
Quarter: 2009Q3

REPORT INFORMATION
  Report Type: 
  Country: None (occurrence: None)
  Receive Date: 20090912
  Receipt Date: 20080822
  Transmission Date: 20100115
  Serious: No
  Sender: FDA-Public Use
  Company Number: US-BAUSCH-2008BL003698

PATIENT
  Age: 85 Year
  Sex: Female

DRUGS (3)
  1. ERYTHROCIN 1% [Suspect]
     Indication: FOREIGN BODY IN EYE
     Route: 047
     Dates: start: 20080822, end: 20080822
  2. ASPIRIN [Concomitant]
  3. REFRESH [Concomitant]
     Route: 047

REACTIONS (1)
  - OCULAR DISCOMFORT [None]
